FAERS Safety Report 9451431 (Version 2)
Quarter: 2013Q3

REPORT INFORMATION
  Report Type: Report from Study
  Country: FR (occurrence: FR)
  Receive Date: 20130809
  Receipt Date: 20130913
  Transmission Date: 20140515
  Serious: No
  Sender: FDA-Public Use
  Company Number: FR-RB-057158-13

PATIENT
  Age: 33 Year
  Sex: Female
  Weight: 60 kg

DRUGS (1)
  1. SUBOXONE TABLET [Suspect]
     Indication: DRUG DEPENDENCE
     Route: 060
     Dates: start: 2013, end: 2013

REACTIONS (2)
  - Insomnia [Recovered/Resolved]
  - Anxiety [Recovered/Resolved]
